FAERS Safety Report 7220542-3 (Version None)
Quarter: 2011Q1

REPORT INFORMATION
  Report Type: 
  Country: None (occurrence: None)
  Receive Date: 20110111
  Receipt Date: 20110105
  Transmission Date: 20110831
  Serious: Yes (Other)
  Sender: FDA-Public Use
  Company Number: IT-PFIZER INC-2009296710

PATIENT
  Age: 74 Year
  Sex: Male

DRUGS (8)
  1. ASCRIPTIN [Suspect]
     Indication: CARDIAC DISORDER
     Dosage: 150 MG, UNK
     Route: 048
     Dates: start: 20090803, end: 20090825
  2. PANTORC [Suspect]
     Dosage: 40 MG, 1X/DAY
     Route: 048
     Dates: start: 20090803, end: 20090825
  3. TORVAST [Suspect]
     Indication: CARDIAC DISORDER
     Dosage: 40 MG, UNK
     Route: 048
     Dates: start: 20090803, end: 20090825
  4. TAREG [Suspect]
     Indication: CARDIAC DISORDER
     Dosage: 40 MG, UNK
     Route: 048
     Dates: start: 20090803, end: 20090825
  5. KANRENOL [Suspect]
     Dosage: 50 MG, UNK
     Route: 048
     Dates: start: 20090803, end: 20090825
  6. KANRENOL [Suspect]
     Indication: CARDIAC DISORDER
     Dosage: 25 MG, UNK
     Route: 048
     Dates: start: 20090803, end: 20090825
  7. METOPROLOL [Suspect]
     Indication: CARDIAC DISORDER
     Dosage: 300 MG, UNK
     Route: 048
     Dates: start: 20090803, end: 20090825
  8. PLAVIX [Suspect]
     Indication: CARDIOVASCULAR DISORDER
     Dosage: 75 MG, UNK
     Route: 048
     Dates: start: 20090803, end: 20090825

REACTIONS (1)
  - DERMATITIS EXFOLIATIVE GENERALISED [None]
